FAERS Safety Report 17639665 (Version 2)
Quarter: 2020Q2

REPORT INFORMATION
  Report Type: Spontaneous
  Country: CN (occurrence: CN)
  Receive Date: 20200407
  Receipt Date: 20200416
  Transmission Date: 20200713
  Serious: Yes (Death)
  Sender: FDA-Public Use
  Company Number: CN-PFIZER INC-2020139775

PATIENT
  Age: 29 Year
  Sex: Female

DRUGS (1)
  1. SOLU-MEDROL [Suspect]
     Active Substance: METHYLPREDNISOLONE SODIUM SUCCINATE
     Indication: IMMUNOSUPPRESSION
     Dosage: 120 MG, 1X/DAY
     Route: 041
     Dates: start: 20200307, end: 20200316

REACTIONS (1)
  - Obesity [Fatal]

NARRATIVE: CASE EVENT DATE: 20200314
